FAERS Safety Report 25940027 (Version 1)
Quarter: 2025Q4

REPORT INFORMATION
  Report Type: Spontaneous
  Country: CA (occurrence: CA)
  Receive Date: 20251020
  Receipt Date: 20251020
  Transmission Date: 20260117
  Serious: Yes (Disabling, Other)
  Sender: CELLTRION
  Company Number: CA-CELLTRION INC.-2025CA037635

PATIENT

DRUGS (1)
  1. OMLYCLO [Suspect]
     Active Substance: OMALIZUMAB-IGEC
     Indication: Chronic spontaneous urticaria
     Dosage: MAINTENANCE - 450 MG - EVERY 4 WEEKS
     Route: 058
     Dates: start: 20250717

REACTIONS (2)
  - Chronic spontaneous urticaria [Unknown]
  - Off label use [Unknown]

NARRATIVE: CASE EVENT DATE: 20250101
